FAERS Safety Report 8248818-1 (Version None)
Quarter: 2012Q2

REPORT INFORMATION
  Report Type: 
  Country: None (occurrence: None)
  Receive Date: 20120401
  Receipt Date: 20120323
  Transmission Date: 20120825
  Serious: Yes (Other)
  Sender: FDA-Public Use
  Company Number: PHHY2012AU025517

PATIENT
  Sex: Female

DRUGS (1)
  1. GABAPENTIN [Suspect]
     Indication: HERPES ZOSTER
     Dosage: 300 MG, QD
     Route: 048

REACTIONS (1)
  - BLINDNESS [None]
